FAERS Safety Report 21925078 (Version 1)
Quarter: 2023Q1

REPORT INFORMATION
  Report Type: Spontaneous
  Country: US (occurrence: US)
  Receive Date: 20230130
  Receipt Date: 20230130
  Transmission Date: 20230418
  Serious: Yes (Hospitalization, Other)
  Sender: FDA-Public Use
  Company Number: US-CPL-003224

PATIENT
  Age: 48 Year
  Sex: Female

DRUGS (2)
  1. TIZANIDINE HYDROCHLORIDE [Interacting]
     Active Substance: TIZANIDINE HYDROCHLORIDE
     Indication: Back pain
  2. CIPROFLOXACIN [Interacting]
     Active Substance: CIPROFLOXACIN
     Indication: Urinary tract infection
     Route: 048

REACTIONS (4)
  - Drug interaction [Unknown]
  - Hypotension [Recovered/Resolved]
  - Bradycardia [Recovered/Resolved]
  - Oxygen saturation decreased [Recovered/Resolved]
